FAERS Safety Report 6643500-6 (Version None)
Quarter: 2010Q1

REPORT INFORMATION
  Report Type: 
  Country: None (occurrence: None)
  Receive Date: 20100319
  Receipt Date: 20100308
  Transmission Date: 20100710
  Serious: Yes (Other)
  Sender: FDA-Public Use
  Company Number: VE-AMGEN-US399605

PATIENT

DRUGS (2)
  1. ENBREL [Suspect]
     Indication: PSORIASIS
     Route: 058
  2. ISONIAZID [Suspect]
     Dosage: UNKNOWN

REACTIONS (7)
  - BLOOD BILIRUBIN INCREASED [None]
  - DISCOMFORT [None]
  - PROTEINURIA [None]
  - PRURIGO [None]
  - RASH ERYTHEMATOUS [None]
  - SKIN EXFOLIATION [None]
  - URINE COLOUR ABNORMAL [None]
